FAERS Safety Report 19453942 (Version 2)
Quarter: 2021Q2

REPORT INFORMATION
  Report Type: Other
  Country: JP (occurrence: JP)
  Receive Date: 20210623
  Receipt Date: 20210628
  Transmission Date: 20210717
  Serious: Yes (Hospitalization)
  Sender: FDA-Public Use
  Company Number: JP-ROCHE-2854666

PATIENT
  Age: 51 Year
  Sex: Male

DRUGS (1)
  1. ATEZOLIZUMAB. [Suspect]
     Active Substance: ATEZOLIZUMAB
     Indication: SQUAMOUS CELL CARCINOMA OF LUNG
     Route: 041

REACTIONS (3)
  - Diabetic ketoacidosis [Recovered/Resolved]
  - Infection [Recovered/Resolved]
  - Hypotension [Recovered/Resolved]
